FAERS Safety Report 18513070 (Version 3)
Quarter: 2022Q1

REPORT INFORMATION
  Report Type: Spontaneous
  Country: US (occurrence: US)
  Receive Date: 20201117
  Receipt Date: 20220225
  Transmission Date: 20220423
  Serious: No
  Sender: FDA-Public Use
  Company Number: US-PFIZER INC-2019103640

PATIENT
  Age: 36 Year
  Sex: Female

DRUGS (1)
  1. LYRICA [Suspect]
     Active Substance: PREGABALIN
     Indication: Fibromyalgia
     Dosage: 300 MG, 1 CAPSULE 2 TIMES A DAY
     Route: 048

REACTIONS (2)
  - Illness [Unknown]
  - Off label use [Unknown]
